FAERS Safety Report 5020684-7 (Version None)
Quarter: 2006Q2

REPORT INFORMATION
  Report Type: 
  Country: None (occurrence: None)
  Receive Date: 20060602
  Receipt Date: 20060515
  Transmission Date: 20061013
  Serious: Yes (Hospitalization, Other)
  Sender: FDA-Public Use
  Company Number: US200604004209

PATIENT
  Age: 72 Year
  Sex: Female
  Weight: 54.4 kg

DRUGS (7)
  1. FORTEO [Suspect]
     Indication: OSTEOPOROSIS
     Dates: start: 20030301, end: 20050301
  2. FORTEO [Concomitant]
  3. SALSALATE (SALSALATE) [Concomitant]
  4. THEOPHYLLINE [Concomitant]
  5. MIACALCIN [Concomitant]
  6. PRILOSEC [Concomitant]
  7. PROVENTIL /USA/ (SALBUTAMOL SULFATE) [Concomitant]

REACTIONS (4)
  - MOBILITY DECREASED [None]
  - PAIN [None]
  - PERIPROSTHETIC OSTEOLYSIS [None]
  - THERAPY NON-RESPONDER [None]
